FAERS Safety Report 10191870 (Version 1)
Quarter: 2014Q2

REPORT INFORMATION
  Report Type: Spontaneous
  Country: US (occurrence: None)
  Receive Date: 20140522
  Receipt Date: 20140522
  Transmission Date: 20141212
  Serious: Yes (Other)
  Sender: FDA-Public Use
  Company Number: None

PATIENT
  Age: 42 Year
  Sex: Female

DRUGS (1)
  1. TRAMADOL [Suspect]
     Indication: PAIN
     Route: 048
     Dates: start: 20140110, end: 20140128

REACTIONS (7)
  - Product substitution issue [None]
  - Nervous system disorder [None]
  - Dysgeusia [None]
  - Ankyloglossia congenital [None]
  - Dysarthria [None]
  - Fatigue [None]
  - Drug ineffective [None]
